FAERS Safety Report 23988222 (Version 1)
Quarter: 2024Q2

REPORT INFORMATION
  Report Type: Spontaneous
  Country: US (occurrence: US)
  Receive Date: 20240619
  Receipt Date: 20240619
  Transmission Date: 20240715
  Serious: No
  Sender: FDA-Public Use
  Company Number: US-AMGEN-USASP2024115797

PATIENT
  Age: 37 Year
  Sex: Male

DRUGS (3)
  1. ADALIMUMAB [Suspect]
     Active Substance: ADALIMUMAB\ISOPROPYL ALCOHOL
     Indication: Juvenile idiopathic arthritis
     Dosage: 40 MILLIGRAM, Q2WK
     Route: 058
  2. ADALIMUMAB [Suspect]
     Active Substance: ADALIMUMAB\ISOPROPYL ALCOHOL
     Indication: Uveitis
  3. PREDNISONE [Suspect]
     Active Substance: PREDNISONE
     Indication: Blau syndrome
     Dosage: 5 MILLIGRAM, QD
     Route: 048

REACTIONS (2)
  - Blau syndrome [Unknown]
  - Off label use [Unknown]
